FAERS Safety Report 8572098-0 (Version None)
Quarter: 2012Q3

REPORT INFORMATION
  Report Type: 
  Country: None (occurrence: None)
  Receive Date: 20120806
  Receipt Date: 20120731
  Transmission Date: 20120928
  Serious: Yes (Other)
  Sender: FDA-Public Use
  Company Number: PHHY2012DE066825

PATIENT
  Sex: Male

DRUGS (2)
  1. TASIGNA [Suspect]
     Indication: CHRONIC MYELOID LEUKAEMIA
     Dosage: 150 MG, BID
     Route: 048
     Dates: start: 20111001
  2. JANUVIA [Concomitant]
     Indication: DIABETES MELLITUS
     Dosage: UNK

REACTIONS (10)
  - THYROXINE DECREASED [None]
  - THYROID NEOPLASM [None]
  - BLOOD THYROID STIMULATING HORMONE INCREASED [None]
  - THYROID DISORDER [None]
  - BLOOD THYROID STIMULATING HORMONE DECREASED [None]
  - HYPERGLYCAEMIA [None]
  - ANTI-THYROID ANTIBODY POSITIVE [None]
  - CONDITION AGGRAVATED [None]
  - TRI-IODOTHYRONINE DECREASED [None]
  - AUTOIMMUNE THYROIDITIS [None]
